FAERS Safety Report 18866745 (Version 2)
Quarter: 2021Q3

REPORT INFORMATION
  Report Type: Report from Study
  Country: CA (occurrence: CA)
  Receive Date: 20210208
  Receipt Date: 20210728
  Transmission Date: 20211014
  Serious: Yes (Hospitalization)
  Sender: FDA-Public Use
  Company Number: CA-JNJFOC-20210205548

PATIENT
  Age: 54 Year
  Sex: Female

DRUGS (1)
  1. SIMPONI [Suspect]
     Active Substance: GOLIMUMAB
     Indication: ANKYLOSING SPONDYLITIS
     Route: 058
     Dates: start: 20150927, end: 20201127

REACTIONS (8)
  - Spinal laminectomy [Unknown]
  - Product use issue [Unknown]
  - Lupus-like syndrome [Not Recovered/Not Resolved]
  - Post procedural infection [Recovering/Resolving]
  - Psoriasis [Unknown]
  - Off label use [Unknown]
  - Ulcer haemorrhage [Recovering/Resolving]
  - Impaired healing [Not Recovered/Not Resolved]

NARRATIVE: CASE EVENT DATE: 20150927
